FAERS Safety Report 5694719-2 (Version None)
Quarter: 2008Q2

REPORT INFORMATION
  Report Type: 
  Country: None (occurrence: None)
  Receive Date: 20080404
  Receipt Date: 20080331
  Transmission Date: 20081010
  Serious: Yes (Other)
  Sender: FDA-Public Use
  Company Number: B0515148A

PATIENT
  Age: 49 Year
  Sex: Male

DRUGS (9)
  1. AVANDIA [Suspect]
  2. ADALAT [Concomitant]
  3. DAPATABS [Concomitant]
  4. NOTEN [Concomitant]
  5. UNKNOWN MEDICATION [Concomitant]
  6. AMARYL [Concomitant]
  7. LASIX [Concomitant]
  8. MAREVAN [Concomitant]
  9. COVERSYL [Concomitant]

REACTIONS (1)
  - PULMONARY EMBOLISM [None]
